FAERS Safety Report 12757893 (Version 7)
Quarter: 2019Q4

REPORT INFORMATION
  Report Type: Spontaneous
  Country: US (occurrence: US)
  Receive Date: 20160919
  Receipt Date: 20191121
  Transmission Date: 20200122
  Serious: Yes (Other)
  Sender: FDA-Public Use
  Company Number: US-PFIZER INC-2016432828

PATIENT
  Age: 55 Year
  Sex: Female
  Weight: 73 kg

DRUGS (4)
  1. CYTOMEL [Suspect]
     Active Substance: LIOTHYRONINE SODIUM
     Dosage: HALF OF THE 50 MCG TABLET IN THE MORNING AND HALF IN THE EVENING
     Route: 048
  2. CYTOMEL [Suspect]
     Active Substance: LIOTHYRONINE SODIUM
     Indication: THYROID CANCER
     Dosage: 50 UG, UNK (TWO 25 MCG)
  3. CYTOMEL [Suspect]
     Active Substance: LIOTHYRONINE SODIUM
     Dosage: 25 MCG, 2X/DAY (25 MCG, 1 TABLET TWICE DAILY)
     Route: 048
  4. LEVOTHYROXINE. [Concomitant]
     Active Substance: LEVOTHYROXINE
     Dosage: UNK

REACTIONS (12)
  - Palpitations [Recovering/Resolving]
  - Cerebrovascular accident [Unknown]
  - Malaise [Unknown]
  - Alopecia [Unknown]
  - Depression [Unknown]
  - Rash morbilliform [Unknown]
  - Nervousness [Unknown]
  - Hyperhidrosis [Unknown]
  - Intentional product misuse [Unknown]
  - Constipation [Unknown]
  - Intentional product use issue [Unknown]
  - Hypotension [Recovering/Resolving]

NARRATIVE: CASE EVENT DATE: 2015
